FAERS Safety Report 18887689 (Version 2)
Quarter: 2021Q1

REPORT INFORMATION
  Report Type: Spontaneous
  Country: US (occurrence: US)
  Receive Date: 20210213
  Receipt Date: 20210224
  Transmission Date: 20210420
  Serious: No
  Sender: FDA-Public Use
  Company Number: US-SA-2021SA040172

PATIENT
  Sex: Male

DRUGS (2)
  1. DUPIXENT [Suspect]
     Active Substance: DUPILUMAB
     Dosage: 300 MG, QOW
     Route: 058
     Dates: start: 202101
  2. DUPIXENT [Suspect]
     Active Substance: DUPILUMAB
     Indication: DERMATITIS ATOPIC
     Dosage: LOADING DOSE
     Route: 058

REACTIONS (6)
  - Pruritus [Recovered/Resolved]
  - Sunburn [Recovered/Resolved]
  - Skin warm [Recovered/Resolved]
  - Pruritus [Unknown]
  - Dry skin [Unknown]
  - Erythema [Recovered/Resolved]
